FAERS Safety Report 5390538-5 (Version None)
Quarter: 2007Q3

REPORT INFORMATION
  Report Type: 
  Country: None (occurrence: None)
  Receive Date: 20070712
  Receipt Date: 20070515
  Transmission Date: 20080115
  Serious: Yes (Hospitalization)
  Sender: FDA-Public Use
  Company Number: 6033520

PATIENT
  Age: 59 Year
  Sex: Male

DRUGS (1)
  1. ENALAPRIL MALEATE [Suspect]
     Indication: HYPERTENSION
     Dosage: 20 MG (10 MG,2 IN 1 D),ORAL
     Route: 048

REACTIONS (4)
  - CONDITION AGGRAVATED [None]
  - ERYTHRODERMIC PSORIASIS [None]
  - PSORIATIC ARTHROPATHY [None]
  - TUBULOINTERSTITIAL NEPHRITIS [None]
